FAERS Safety Report 25790397 (Version 1)
Quarter: 2025Q3

REPORT INFORMATION
  Report Type: Spontaneous
  Country: EU (occurrence: EU)
  Receive Date: 20250911
  Receipt Date: 20250911
  Transmission Date: 20251020
  Serious: Yes (Hospitalization, Other)
  Sender: RANBAXY
  Company Number: EU-JNJFOC-20240333628

PATIENT
  Age: 65 Year
  Sex: Female

DRUGS (4)
  1. LENALIDOMIDE [Suspect]
     Active Substance: LENALIDOMIDE
     Indication: Plasma cell myeloma
     Route: 065
  2. TOLODODEKIN ALFA [Suspect]
     Active Substance: TOLODODEKIN ALFA
     Indication: Plasma cell myeloma
     Route: 065
  3. DEXAMETHASONE [Suspect]
     Active Substance: DEXAMETHASONE
     Indication: Plasma cell myeloma
     Route: 065
  4. CEFUROXIME [Concomitant]
     Active Substance: CEFUROXIME
     Indication: Urinary tract infection
     Dosage: 250 MILLIGRAM, BID
     Route: 065

REACTIONS (3)
  - Febrile neutropenia [Recovered/Resolved]
  - Listeriosis [Recovered/Resolved]
  - Escherichia urinary tract infection [Unknown]
